FAERS Safety Report 18075106 (Version 2)
Quarter: 2020Q3

REPORT INFORMATION
  Report Type: Report from Study
  Country: IT (occurrence: IT)
  Receive Date: 20200727
  Receipt Date: 20200810
  Transmission Date: 20201103
  Serious: Yes (Other)
  Sender: FDA-Public Use
  Company Number: IT-REGENERON PHARMACEUTICALS, INC.-2020-51669

PATIENT

DRUGS (2)
  1. EYLEA [Suspect]
     Active Substance: AFLIBERCEPT
     Indication: CHORIORETINAL ATROPHY
     Dosage: PRO?RE?NATA REGIMEN FOR 48 WEEKS
     Route: 031
  2. EYLEA [Suspect]
     Active Substance: AFLIBERCEPT
     Indication: CHOROIDAL NEOVASCULARISATION
     Dosage: 2 MG /0.05 ML AFLIBERCEPT AT THE TIME OF ENROLMENT
     Route: 031

REACTIONS (1)
  - Ocular hypertension [Recovered/Resolved]
